FAERS Safety Report 6180884-X (Version None)
Quarter: 2009Q2

REPORT INFORMATION
  Report Type: 
  Country: None (occurrence: None)
  Receive Date: 20090506
  Receipt Date: 20090424
  Transmission Date: 20091009
  Serious: Yes (Hospitalization)
  Sender: FDA-Public Use
  Company Number: TW-PFIZER INC-2009200187

PATIENT

DRUGS (13)
  1. PREDNISOLONE AND PREDNISOLONE STEAGLATE [Suspect]
     Indication: PROSTATE CANCER
     Dosage: 5 MG, 2X/DAY
     Route: 048
     Dates: start: 20090219, end: 20090419
  2. BLINDED *PLACEBO [Suspect]
     Indication: PROSTATE CANCER
     Dosage: 37.5 MG, 1X/DAY
     Route: 048
     Dates: start: 20090219
  3. BLINDED SUNITINIB MALATE [Suspect]
     Indication: PROSTATE CANCER
     Dosage: 37.5 MG, 1X/DAY
     Route: 048
     Dates: start: 20090219
  4. ACETYLSALICYLIC ACID [Concomitant]
     Indication: PROPHYLAXIS
     Dates: start: 20051104, end: 20090319
  5. STILBOESTROL [Concomitant]
     Indication: PROSTATE CANCER
     Dosage: UNK
     Dates: start: 20051104
  6. BICALUTAMIDE [Concomitant]
     Indication: PROSTATE CANCER
     Dates: start: 20070510, end: 20090319
  7. CLODRONATE DISODIUM [Concomitant]
     Indication: METASTASES TO BONE
     Dates: start: 20080508, end: 20090319
  8. CALCITRIOL [Concomitant]
     Indication: METASTASES TO BONE
     Dates: start: 20080508, end: 20090319
  9. AMLODIPINE [Concomitant]
     Indication: HYPERTENSION
     Dosage: UNK
     Dates: start: 20090115
  10. BROMHEXINE [Concomitant]
     Indication: UPPER RESPIRATORY TRACT INFECTION
     Dosage: UNK
     Dates: start: 20090305
  11. ULTRACET [Concomitant]
     Indication: BONE PAIN
     Dosage: UNK
     Dates: start: 20090319
  12. METOCLOPRAMIDE [Concomitant]
     Indication: ABDOMINAL PAIN UPPER
     Dosage: UNK
     Dates: start: 20090319
  13. TOPAAL [Concomitant]
     Indication: ABDOMINAL PAIN UPPER
     Dosage: UNK
     Dates: start: 20090319

REACTIONS (2)
  - GASTRIC ULCER [None]
  - NEUTROPENIA [None]
